FAERS Safety Report 7775696-7 (Version None)
Quarter: 2011Q3

REPORT INFORMATION
  Report Type: 
  Country: None (occurrence: None)
  Receive Date: 20110923
  Receipt Date: 20110920
  Transmission Date: 20111222
  Serious: Yes (Hospitalization)
  Sender: FDA-Public Use
  Company Number: US-GLAXOSMITHKLINE-B0705780A

PATIENT
  Sex: Male
  Weight: 91.8 kg

DRUGS (18)
  1. VIOXX [Concomitant]
  2. LOTENSIN [Concomitant]
  3. DEMADEX [Concomitant]
  4. ASPIRIN [Concomitant]
  5. TOPROL-XL [Concomitant]
  6. AVANDAMET [Suspect]
     Indication: DIABETES MELLITUS
     Route: 048
     Dates: start: 20040101
  7. ZETIA [Concomitant]
  8. AMARYL [Concomitant]
  9. HYDROCHLOROTHIAZIDE [Concomitant]
  10. FOLTX [Concomitant]
  11. CRESTOR [Concomitant]
  12. AVANDIA [Suspect]
     Indication: DIABETES MELLITUS
     Dosage: 4MG TWICE PER DAY
     Route: 048
     Dates: start: 20041101, end: 20070601
  13. NORVASC [Concomitant]
  14. PROSCAR [Concomitant]
  15. COREG [Concomitant]
  16. LASIX [Concomitant]
  17. POTASSIUM CHLORIDE [Concomitant]
  18. AMIODARONE HCL [Concomitant]

REACTIONS (2)
  - CEREBROVASCULAR ACCIDENT [None]
  - CARDIAC FAILURE CONGESTIVE [None]
